FAERS Safety Report 6261589-3 (Version None)
Quarter: 2009Q3

REPORT INFORMATION
  Report Type: 
  Country: None (occurrence: None)
  Receive Date: 20090709
  Receipt Date: 20090318
  Transmission Date: 20100115
  Serious: No
  Sender: FDA-Public Use
  Company Number: US-BAYER-200916094NA

PATIENT
  Age: 49 Year
  Sex: Female
  Weight: 96 kg

DRUGS (2)
  1. ANGELIQ [Suspect]
     Indication: MENOPAUSE
     Dosage: 0.5MG/1MG
     Route: 048
     Dates: start: 20090314
  2. AMBIEN [Concomitant]
     Indication: INSOMNIA

REACTIONS (2)
  - DIZZINESS [None]
  - NAUSEA [None]
